FAERS Safety Report 8955781 (Version 2)
Quarter: 2013Q1

REPORT INFORMATION
  Report Type: Spontaneous
  Country: CA (occurrence: CA)
  Receive Date: 20121210
  Receipt Date: 20130220
  Transmission Date: 20140127
  Serious: Yes (Hospitalization, Other)
  Sender: FDA-Public Use
  Company Number: CA-B.I. PHARMACEUTICALS,INC./RIDGEFIELD-2012-CN-02483CN

PATIENT
  Age: 88 Year
  Sex: Female
  Weight: 52 kg

DRUGS (9)
  1. PRADAX [Suspect]
     Indication: ATRIAL FIBRILLATION
     Dosage: 220 MG
     Route: 048
     Dates: start: 20110815
  2. ACETAMINOPHEN [Concomitant]
     Route: 048
  3. ASA EC 80 [Concomitant]
     Dosage: 80 MG
     Route: 048
  4. CARBOCAL D [Concomitant]
     Route: 048
  5. INSULIN HUMULIN N [Concomitant]
     Route: 058
  6. LIPITOR [Concomitant]
     Dosage: 10 MG
     Route: 048
  7. METFORMIN [Concomitant]
     Dosage: 600 MG
     Route: 048
  8. METOPROLOL [Concomitant]
     Dosage: 100 MG
     Route: 048
  9. SYNTHROID [Concomitant]
     Dosage: 0.075 MG
     Route: 048

REACTIONS (3)
  - Anaemia [Recovered/Resolved]
  - Bone marrow failure [Recovered/Resolved]
  - Occult blood [Recovered/Resolved]
